FAERS Safety Report 20514326 (Version 1)
Quarter: 2022Q1

REPORT INFORMATION
  Report Type: Spontaneous
  Country: NL (occurrence: NL)
  Receive Date: 20220224
  Receipt Date: 20220224
  Transmission Date: 20220424
  Serious: Yes (Death)
  Sender: FDA-Public Use
  Company Number: NL-CELLTRION HEALTHCARE HUNGARY KFT-2022NL000298

PATIENT

DRUGS (12)
  1. DOCETAXEL [Suspect]
     Active Substance: DOCETAXEL
     Indication: Metastatic salivary gland cancer
     Dosage: UNK
  2. DOCETAXEL [Suspect]
     Active Substance: DOCETAXEL
     Indication: HER2 positive salivary gland cancer
     Dosage: 75 MILLIGRAM/SQ. METER, Q3W (6 DOSAGES (75 MG/M2), EVERY 3 WEEKS)
  3. DOCETAXEL [Suspect]
     Active Substance: DOCETAXEL
     Indication: Salivary gland cancer recurrent
     Dosage: UNK
  4. TRASTUZUMAB [Suspect]
     Active Substance: TRASTUZUMAB
     Indication: Salivary gland cancer recurrent
     Dosage: UNK
  5. TRASTUZUMAB [Suspect]
     Active Substance: TRASTUZUMAB
     Indication: HER2 positive salivary gland cancer
     Dosage: EITHER INTRAVENOUSLY (I.V., STARTING DOSE 8 MG/KG, WITH SUBSEQUENT DOSAGES OF 6 MG/KG) OR SUBCUTANEO
  6. TRASTUZUMAB [Suspect]
     Active Substance: TRASTUZUMAB
     Indication: Metastatic salivary gland cancer
     Dosage: UNK
  7. PERTUZUMAB [Suspect]
     Active Substance: PERTUZUMAB
     Indication: Salivary gland cancer recurrent
     Dosage: SUBSEQUENT DOSES OF 420 MG, EVERY 3 WEEKS
     Route: 042
  8. PERTUZUMAB [Suspect]
     Active Substance: PERTUZUMAB
     Indication: HER2 positive salivary gland cancer
     Dosage: 840 MILLIGRAM, Q3W (840 MG, EVERY 3 WEEKS)
     Route: 042
  9. ADO-TRASTUZUMAB EMTANSINE [Suspect]
     Active Substance: ADO-TRASTUZUMAB EMTANSINE
     Indication: HER2 positive salivary gland cancer
     Dosage: 3.6 MG/KG, EVERY 3 WEEKS
     Route: 042
  10. ADO-TRASTUZUMAB EMTANSINE [Suspect]
     Active Substance: ADO-TRASTUZUMAB EMTANSINE
     Indication: Metastatic salivary gland cancer
     Dosage: UNK
  11. ADO-TRASTUZUMAB EMTANSINE [Suspect]
     Active Substance: ADO-TRASTUZUMAB EMTANSINE
     Indication: Salivary gland cancer recurrent
     Dosage: UNK
  12. PERTUZUMAB [Suspect]
     Active Substance: PERTUZUMAB
     Indication: Metastatic salivary gland cancer
     Dosage: UNK

REACTIONS (3)
  - Death [Fatal]
  - Therapy partial responder [Unknown]
  - Off label use [Unknown]
